FAERS Safety Report 7788044-3 (Version None)
Quarter: 2011Q3

REPORT INFORMATION
  Report Type: 
  Country: None (occurrence: None)
  Receive Date: 20110927
  Receipt Date: 20110906
  Transmission Date: 20111222
  Serious: Yes (Death, Hospitalization)
  Sender: FDA-Public Use
  Company Number: 2008-00408

PATIENT
  Age: 55 Year
  Sex: Female

DRUGS (15)
  1. ORAMORPH SR [Concomitant]
  2. POTASSIUM CHLORIDE [Concomitant]
  3. IDARUBICIN HCL [Suspect]
     Indication: MULTIPLE MYELOMA
     Dosage: 10 MG, ORAL
     Route: 048
     Dates: start: 20071213, end: 20071224
  4. MORPHINE SULFATE INJ [Concomitant]
  5. FILGRASTIM (FILGRASTIM) [Concomitant]
  6. MELPHALAN HYDROCHLORIDE [Suspect]
     Indication: MULTIPLE MYELOMA
     Dosage: 28.5;25.5 MG, INTRAVENOUS
     Route: 042
     Dates: start: 20071210, end: 20071210
  7. MELPHALAN HYDROCHLORIDE [Suspect]
     Indication: MULTIPLE MYELOMA
     Dosage: 28.5;25.5 MG, INTRAVENOUS
     Route: 042
     Dates: start: 20080118, end: 20080118
  8. MILPAR (MAGNESIUM HYDROXIDE, PARAFFIN, LIQUID) [Concomitant]
  9. SENNA (SENNA) [Concomitant]
  10. PREDNISOLONE [Concomitant]
  11. LANSOPRAZOLE [Concomitant]
  12. VELCADE [Suspect]
     Indication: MULTIPLE MYELOMA
     Dosage: 2.5; 1.7 MG, INTRAVENOUS
     Route: 042
     Dates: start: 20071207, end: 20071218
  13. VELCADE [Suspect]
     Indication: MULTIPLE MYELOMA
     Dosage: 2.5; 1.7 MG, INTRAVENOUS
     Route: 042
     Dates: start: 20080115, end: 20080125
  14. METOCLOPRAMIDE [Concomitant]
  15. CIPROFLOXACIN [Concomitant]

REACTIONS (3)
  - DISEASE PROGRESSION [None]
  - LOWER RESPIRATORY TRACT INFECTION [None]
  - PANCYTOPENIA [None]
